FAERS Safety Report 8555704-6 (Version None)
Quarter: 2012Q3

REPORT INFORMATION
  Report Type: 
  Country: None (occurrence: None)
  Receive Date: 20120801
  Receipt Date: 20120723
  Transmission Date: 20120928
  Serious: Yes (Hospitalization)
  Sender: FDA-Public Use
  Company Number: US-009507513-1207USA010746

PATIENT

DRUGS (4)
  1. AMOXICILLIN [Concomitant]
  2. OMEPRAZOLE [Concomitant]
  3. ZOCOR [Suspect]
     Route: 048
  4. CLARITHROMYCIN [Suspect]

REACTIONS (4)
  - RHABDOMYOLYSIS [None]
  - ABASIA [None]
  - FALL [None]
  - DRUG INTERACTION [None]
